FAERS Safety Report 12763487 (Version 2)
Quarter: 2016Q3

REPORT INFORMATION
  Report Type: Spontaneous
  Country: US (occurrence: US)
  Receive Date: 20160920
  Receipt Date: 20160928
  Transmission Date: 20161109
  Serious: No
  Sender: FDA-Public Use
  Company Number: US-ASTRAZENECA-2016SE99632

PATIENT
  Sex: Female
  Weight: 61.2 kg

DRUGS (11)
  1. SEROQUEL [Suspect]
     Active Substance: QUETIAPINE FUMARATE
     Indication: BIPOLAR DISORDER
     Dosage: GENERIC SEROQUEL - QUETIAPINE FUMERATE 50MG AS NEEDED
     Route: 048
     Dates: end: 20160717
  2. SEROQUEL [Suspect]
     Active Substance: QUETIAPINE FUMARATE
     Indication: ANXIETY
     Dosage: GENERIC SEROQUEL - QUETIAPINE FUMERATE 50MG AS NEEDED
     Route: 048
     Dates: start: 20160829
  3. SEROQUEL [Suspect]
     Active Substance: QUETIAPINE FUMARATE
     Indication: DEPRESSION
     Dosage: GENERIC SEROQUEL - QUETIAPINE FUMERATE 50MG AS NEEDED
     Route: 048
     Dates: start: 20160829
  4. SEROQUEL [Suspect]
     Active Substance: QUETIAPINE FUMARATE
     Indication: ANXIETY
     Dosage: UNKNOWN
     Route: 048
  5. SEROQUEL [Suspect]
     Active Substance: QUETIAPINE FUMARATE
     Indication: DEPRESSION
     Dosage: UNKNOWN
     Route: 048
  6. SEROQUEL [Suspect]
     Active Substance: QUETIAPINE FUMARATE
     Indication: BIPOLAR DISORDER
     Dosage: GENERIC SEROQUEL - QUETIAPINE FUMERATE 50MG AS NEEDED
     Route: 048
     Dates: start: 20160829
  7. GABAPENTIN. [Concomitant]
     Active Substance: GABAPENTIN
     Indication: DEPRESSION
     Route: 048
     Dates: start: 20160830
  8. SEROQUEL [Suspect]
     Active Substance: QUETIAPINE FUMARATE
     Indication: ANXIETY
     Dosage: GENERIC SEROQUEL - QUETIAPINE FUMERATE 50MG AS NEEDED
     Route: 048
     Dates: end: 20160717
  9. SEROQUEL [Suspect]
     Active Substance: QUETIAPINE FUMARATE
     Indication: BIPOLAR DISORDER
     Dosage: UNKNOWN
     Route: 048
  10. SEROQUEL [Suspect]
     Active Substance: QUETIAPINE FUMARATE
     Indication: DEPRESSION
     Dosage: GENERIC SEROQUEL - QUETIAPINE FUMERATE 50MG AS NEEDED
     Route: 048
     Dates: end: 20160717
  11. GABAPENTIN. [Concomitant]
     Active Substance: GABAPENTIN
     Indication: ANXIETY
     Route: 048
     Dates: start: 20160830

REACTIONS (5)
  - Product used for unknown indication [Unknown]
  - Chronic obstructive pulmonary disease [Unknown]
  - Drug screen positive [Unknown]
  - Drug dose omission [Unknown]
  - Off label use [Unknown]
